FAERS Safety Report 7952996-9 (Version None)
Quarter: 2011Q4

REPORT INFORMATION
  Report Type: 
  Country: None (occurrence: None)
  Receive Date: 20111201
  Receipt Date: 20111118
  Transmission Date: 20120403
  Serious: Yes (Hospitalization)
  Sender: FDA-Public Use
  Company Number: ES-ARROW GEN-2011-20065

PATIENT
  Age: 3 Month
  Sex: Male

DRUGS (1)
  1. IPRATROPIUM BROMIDE [Suspect]
     Indication: PNEUMONIA
     Dosage: 250 MCG/ML, UNK 1 ML
     Route: 065
     Dates: start: 20110416, end: 20110417

REACTIONS (1)
  - PUPILS UNEQUAL [None]
